FAERS Safety Report 10684639 (Version 1)
Quarter: 2014Q4

REPORT INFORMATION
  Report Type: Spontaneous
  Country: US (occurrence: None)
  Receive Date: 20141230
  Receipt Date: 20141230
  Transmission Date: 20150529
  Serious: Yes (Hospitalization)
  Sender: FDA-Public Use
  Company Number: None

PATIENT
  Age: 62 Year
  Sex: Female

DRUGS (2)
  1. DULOXETINE [Suspect]
     Active Substance: DULOXETINE
     Indication: ARACHNOIDITIS
     Dosage: 90NG ONCE DAILY  TAKEN BY MOUTH
     Route: 048
     Dates: start: 20141016, end: 20141229
  2. DULOXETINE [Suspect]
     Active Substance: DULOXETINE
     Indication: PAIN
     Dosage: 90NG ONCE DAILY  TAKEN BY MOUTH
     Route: 048
     Dates: start: 20141016, end: 20141229

REACTIONS (7)
  - Anxiety [None]
  - Crying [None]
  - Product substitution issue [None]
  - Blood pressure increased [None]
  - Tremor [None]
  - Hyperventilation [None]
  - Weight decreased [None]

NARRATIVE: CASE EVENT DATE: 20141016
